FAERS Safety Report 25122787 (Version 1)
Quarter: 2025Q1

REPORT INFORMATION
  Report Type: Spontaneous
  Country: HR (occurrence: HR)
  Receive Date: 20250326
  Receipt Date: 20250326
  Transmission Date: 20250408
  Serious: Yes (Congenital Anomaly, Other)
  Sender: STRIDES
  Company Number: HR-STRIDES ARCOLAB LIMITED-2025SP003925

PATIENT
  Sex: Male

DRUGS (3)
  1. DIAZEPAM [Suspect]
     Active Substance: DIAZEPAM
     Indication: Product used for unknown indication
     Route: 064
  2. DYDROGESTERONE [Suspect]
     Active Substance: DYDROGESTERONE
     Indication: Product used for unknown indication
     Route: 064
  3. ACETAMINOPHEN [Suspect]
     Active Substance: ACETAMINOPHEN
     Indication: Product used for unknown indication
     Route: 064

REACTIONS (3)
  - Limb reduction defect [Unknown]
  - Bone disorder [Unknown]
  - Foetal exposure during pregnancy [Unknown]
